FAERS Safety Report 8664740 (Version 3)
Quarter: 2025Q2

REPORT INFORMATION
  Report Type: Report from Study
  Country: LB (occurrence: LB)
  Receive Date: 20120713
  Receipt Date: 20250425
  Transmission Date: 20250716
  Serious: Yes (Other)
  Sender: ROCHE
  Company Number: LB-ROCHE-647350

PATIENT

DRUGS (2)
  1. AVASTIN [Suspect]
     Active Substance: BEVACIZUMAB
     Indication: Eye inflammation
     Route: 050
  2. AVASTIN [Suspect]
     Active Substance: BEVACIZUMAB
     Indication: Neovascularisation

REACTIONS (8)
  - Macular fibrosis [Unknown]
  - Subretinal fibrosis [Unknown]
  - Retinal haemorrhage [Unknown]
  - Ocular hypertension [Unknown]
  - Retinal pigment epithelial tear [Unknown]
  - Macular ischaemia [Unknown]
  - Off label use [Unknown]
  - Off label use [Unknown]
